FAERS Safety Report 15363444 (Version 4)
Quarter: 2018Q4

REPORT INFORMATION
  Report Type: Spontaneous
  Country: US (occurrence: US)
  Receive Date: 20180907
  Receipt Date: 20181204
  Transmission Date: 20190204
  Serious: Yes (Other)
  Sender: FDA-Public Use
  Company Number: PHEH2018US037244

PATIENT
  Age: 67 Year
  Sex: Male
  Weight: 78.8 kg

DRUGS (3)
  1. FLU VACCINE VII [Suspect]
     Active Substance: INFLUENZA VIRUS VACCINE
     Indication: PRODUCT USED FOR UNKNOWN INDICATION
     Route: 065
  2. OPDIVO [Suspect]
     Active Substance: NIVOLUMAB
     Indication: CLEAR CELL RENAL CELL CARCINOMA
     Dosage: UNK
     Route: 065
     Dates: start: 20180823
  3. VOTRIENT [Suspect]
     Active Substance: PAZOPANIB HYDROCHLORIDE
     Indication: RENAL CANCER
     Dosage: 600 MG, QD
     Route: 048
     Dates: start: 20171011, end: 20180815

REACTIONS (17)
  - Pain [Recovering/Resolving]
  - Cough [Recovered/Resolved]
  - Dyspnoea [Unknown]
  - Rales [Unknown]
  - Blood alkaline phosphatase increased [Unknown]
  - Metastases to bone [Unknown]
  - Metastases to lung [Unknown]
  - Pathological fracture [Unknown]
  - Toxicity to various agents [Unknown]
  - Renal cancer [Unknown]
  - Malignant neoplasm progression [Unknown]
  - Weight decreased [Unknown]
  - Pneumonitis [Recovering/Resolving]
  - Sleep disorder [Unknown]
  - Alanine aminotransferase increased [Unknown]
  - Haematocrit decreased [Unknown]
  - Haemoglobin decreased [Unknown]

NARRATIVE: CASE EVENT DATE: 201806
